FAERS Safety Report 10206145 (Version 1)
Quarter: 2014Q2

REPORT INFORMATION
  Report Type: Spontaneous
  Country: PT (occurrence: PT)
  Receive Date: 20140530
  Receipt Date: 20140530
  Transmission Date: 20141212
  Serious: Yes (Other)
  Sender: FDA-Public Use
  Company Number: PT-CELGENEUS-130-21880-14053333

PATIENT
  Sex: 0

DRUGS (1)
  1. REVLIMID [Suspect]
     Indication: MYELODYSPLASTIC SYNDROME
     Route: 048

REACTIONS (5)
  - Clonal evolution [Unknown]
  - Leukaemia [Unknown]
  - Pancytopenia [Unknown]
  - Therapeutic response decreased [Unknown]
  - Myelodysplastic syndrome [Unknown]
